FAERS Safety Report 24624338 (Version 1)
Quarter: 2024Q4

REPORT INFORMATION
  Report Type: Report from Study
  Country: IN (occurrence: IN)
  Receive Date: 20241115
  Receipt Date: 20241115
  Transmission Date: 20250115
  Serious: Yes (Hospitalization)
  Sender: ALEXION PHARMACEUTICALS
  Company Number: IN-AstraZeneca-CH-00742932A

PATIENT
  Age: 52 Year

DRUGS (34)
  1. OSIMERTINIB [Suspect]
     Active Substance: OSIMERTINIB
     Indication: Metastatic neoplasm
     Dosage: 80 MILLIGRAM, QD
  2. OSIMERTINIB [Suspect]
     Active Substance: OSIMERTINIB
     Dosage: 80 MILLIGRAM, QD
  3. OSIMERTINIB [Suspect]
     Active Substance: OSIMERTINIB
     Dosage: 80 MILLIGRAM, QD
  4. OSIMERTINIB [Suspect]
     Active Substance: OSIMERTINIB
     Dosage: 80 MILLIGRAM, QD
  5. DULOXETINE [Concomitant]
     Active Substance: DULOXETINE
     Route: 065
  6. DULOXETINE [Concomitant]
     Active Substance: DULOXETINE
  7. DULOXETINE [Concomitant]
     Active Substance: DULOXETINE
     Route: 065
  8. DULOXETINE [Concomitant]
     Active Substance: DULOXETINE
  9. FENTANYL [Concomitant]
     Active Substance: FENTANYL
  10. FENTANYL [Concomitant]
     Active Substance: FENTANYL
     Route: 065
  11. MORPHINE [Concomitant]
     Active Substance: MORPHINE
  12. MORPHINE [Concomitant]
     Active Substance: MORPHINE
     Route: 065
  13. Supracal [Concomitant]
  14. Supracal [Concomitant]
  15. VITAMINS [Concomitant]
     Active Substance: VITAMINS
  16. VITAMINS [Concomitant]
     Active Substance: VITAMINS
     Route: 065
  17. Dexa [Concomitant]
     Dosage: 4 MILLIGRAM
  18. Dexa [Concomitant]
     Dosage: 4 MILLIGRAM
     Route: 065
  19. Quicobal [Concomitant]
  20. Quicobal [Concomitant]
     Route: 065
  21. FOLVITE [Concomitant]
     Active Substance: FOLIC ACID
     Dosage: 5 MILLIGRAM
  22. FOLVITE [Concomitant]
     Active Substance: FOLIC ACID
     Dosage: 5 MILLIGRAM
     Route: 065
  23. CREMAFFIN [Concomitant]
     Dosage: 30 MILLILITER
  24. CREMAFFIN [Concomitant]
     Dosage: 30 MILLILITER
     Route: 065
  25. NEUROBION FORTE [Concomitant]
     Active Substance: CYANOCOBALAMIN\PYRIDOXINE HYDROCHLORIDE\THIAMINE DISULFIDE
  26. NEUROBION FORTE [Concomitant]
     Active Substance: CYANOCOBALAMIN\PYRIDOXINE HYDROCHLORIDE\THIAMINE DISULFIDE
  27. GABA [Concomitant]
     Active Substance: HOMEOPATHICS
     Dosage: 400 UNK
  28. GABA [Concomitant]
     Active Substance: HOMEOPATHICS
     Dosage: 400 UNK
     Route: 065
  29. DULOXETINE [Concomitant]
     Active Substance: DULOXETINE
  30. DULOXETINE [Concomitant]
     Active Substance: DULOXETINE
     Route: 065
  31. CALMITON [Concomitant]
  32. CALMITON [Concomitant]
  33. LIDOCAINE [Concomitant]
     Active Substance: LIDOCAINE
  34. LIDOCAINE [Concomitant]
     Active Substance: LIDOCAINE
     Route: 065

REACTIONS (2)
  - Nerve compression [Recovered/Resolved with Sequelae]
  - Back pain [Recovered/Resolved with Sequelae]
